FAERS Safety Report 9695791 (Version 1)
Quarter: 2013Q4

REPORT INFORMATION
  Report Type: Spontaneous
  Country: US (occurrence: None)
  Receive Date: 20131118
  Receipt Date: 20131118
  Transmission Date: 20140711
  Serious: Yes (Life-Threatening, Hospitalization)
  Sender: FDA-Public Use
  Company Number: None

PATIENT
  Age: 70 Year
  Sex: Male
  Weight: 118.84 kg

DRUGS (15)
  1. XARELTO [Suspect]
     Indication: POSTOPERATIVE CARE
     Dosage: 1 TAB QD ORAL
     Route: 048
     Dates: start: 20131109, end: 20131115
  2. XARELTO [Suspect]
     Indication: HIP ARTHROPLASTY
     Dosage: 1 TAB QD ORAL
     Route: 048
     Dates: start: 20131109, end: 20131115
  3. XARELTO [Suspect]
     Indication: THROMBOSIS PROPHYLAXIS
     Dosage: 1 TAB QD ORAL
     Route: 048
     Dates: start: 20131109, end: 20131115
  4. AMITRYIPTYLINE-CHLORDIAZEPOXIDE [Concomitant]
  5. AMLODIPINE [Concomitant]
  6. BUSPIRONE [Concomitant]
  7. COQ10 [Concomitant]
  8. DIOVAN [Concomitant]
  9. FUROSEMIDE [Concomitant]
  10. LEXAPRO [Concomitant]
  11. NORCO [Concomitant]
  12. METOPROLOL [Concomitant]
  13. OMEPRAZOLE [Concomitant]
  14. POTASSIUM [Concomitant]
  15. DIAZEPAM [Concomitant]

REACTIONS (1)
  - Hypoglycaemic coma [None]
